FAERS Safety Report 18349731 (Version 2)
Quarter: 2020Q4

REPORT INFORMATION
  Report Type: Other
  Country: RU (occurrence: RU)
  Receive Date: 20201006
  Receipt Date: 20201007
  Transmission Date: 20210114
  Serious: Yes (Other)
  Sender: FDA-Public Use
  Company Number: RU-ROCHE-2684967

PATIENT

DRUGS (6)
  1. LEUCOVORIN. [Suspect]
     Active Substance: LEUCOVORIN
     Indication: HER2 POSITIVE GASTRIC CANCER
     Route: 065
  2. CAPECITABINE. [Suspect]
     Active Substance: CAPECITABINE
     Indication: HER2 POSITIVE GASTRIC CANCER
     Route: 065
  3. TRASTUZUMAB. [Suspect]
     Active Substance: TRASTUZUMAB
     Indication: HER2 POSITIVE GASTRIC CANCER
     Route: 065
  4. OXALIPLATIN. [Suspect]
     Active Substance: OXALIPLATIN
     Indication: HER2 POSITIVE GASTRIC CANCER
     Route: 065
  5. FLUOROURACIL. [Suspect]
     Active Substance: FLUOROURACIL
     Indication: HER2 POSITIVE GASTRIC CANCER
     Route: 065
  6. DOCETAXEL. [Suspect]
     Active Substance: DOCETAXEL
     Indication: HER2 POSITIVE GASTRIC CANCER
     Route: 065

REACTIONS (1)
  - Gastric cancer [Unknown]
